FAERS Safety Report 7110330-0 (Version None)
Quarter: 2010Q4

REPORT INFORMATION
  Report Type: 
  Country: None (occurrence: None)
  Receive Date: 20101118
  Receipt Date: 20101112
  Transmission Date: 20110411
  Serious: Yes (Hospitalization, Other)
  Sender: FDA-Public Use
  Company Number: US-PFIZER INC-2010147250

PATIENT
  Sex: Male
  Weight: 72 kg

DRUGS (6)
  1. TIKOSYN [Suspect]
     Dosage: 0.5 MG, SINGLE
     Dates: start: 20101108, end: 20101108
  2. COREG [Suspect]
     Dosage: 12.5 MG, 2X/DAY
     Route: 048
  3. SOTALOL [Suspect]
     Dosage: UNK
     Dates: end: 20101108
  4. VALIUM [Concomitant]
     Dosage: 5 MG, 1X/DAY
     Route: 048
  5. MICARDIS [Concomitant]
     Dosage: 40 MG, 1X/DAY
     Route: 048
  6. BUMEX [Concomitant]
     Dosage: 0.5 MG, 1X/DAY
     Route: 048

REACTIONS (1)
  - ELECTROCARDIOGRAM QT PROLONGED [None]
